FAERS Safety Report 4816924-7 (Version None)
Quarter: 2005Q4

REPORT INFORMATION
  Report Type: 
  Country: None (occurrence: None)
  Receive Date: 20051101
  Receipt Date: 20051019
  Transmission Date: 20060501
  Serious: Yes (Other)
  Sender: FDA-Public Use
  Company Number: PHBS2005FR15761

PATIENT
  Sex: Male

DRUGS (2)
  1. CARBOPLATIN [Concomitant]
     Route: 065
  2. PAMIDRONATE DISODIUM [Suspect]
     Indication: HYPERCALCAEMIA
     Dosage: 1 MG/KG
     Route: 042

REACTIONS (8)
  - BRAIN OEDEMA [None]
  - CREATININE RENAL CLEARANCE DECREASED [None]
  - DRUG TOXICITY [None]
  - HYPOCALCAEMIA [None]
  - HYPOMAGNESAEMIA [None]
  - HYPOPHOSPHATAEMIA [None]
  - INTRACRANIAL PRESSURE INCREASED [None]
  - RENAL FAILURE ACUTE [None]
